FAERS Safety Report 12775754 (Version 1)
Quarter: 2016Q3

REPORT INFORMATION
  Report Type: Spontaneous
  Country: US (occurrence: US)
  Receive Date: 20160922
  Receipt Date: 20160922
  Transmission Date: 20161109
  Serious: No
  Sender: FDA-Public Use
  Company Number: None

PATIENT
  Age: 33 Year
  Sex: Female

DRUGS (4)
  1. IMATINIB [Suspect]
     Active Substance: IMATINIB
     Indication: ACUTE MYELOID LEUKAEMIA
     Route: 048
     Dates: start: 20160826
  2. HYDROXYZ PAM [Concomitant]
     Active Substance: HYDROXYZINE PAMOATE
  3. VITAMIN B-6 [Concomitant]
     Active Substance: PYRIDOXINE
  4. VIT E/D-ALPHA [Concomitant]

REACTIONS (3)
  - Fatigue [None]
  - Nausea [None]
  - Headache [None]

NARRATIVE: CASE EVENT DATE: 201609
